FAERS Safety Report 5087004-3 (Version None)
Quarter: 2006Q3

REPORT INFORMATION
  Report Type: 
  Country: None (occurrence: None)
  Receive Date: 20060821
  Receipt Date: 20060811
  Transmission Date: 20061208
  Serious: Yes (Other)
  Sender: FDA-Public Use
  Company Number: 2006098721

PATIENT

DRUGS (1)
  1. LYRICA [Suspect]
     Indication: ANXIETY DISORDER
     Dosage: ORAL
     Route: 048

REACTIONS (4)
  - ANGINA PECTORIS [None]
  - ANXIETY DISORDER [None]
  - CONDITION AGGRAVATED [None]
  - PANIC ATTACK [None]
